FAERS Safety Report 8033052-0 (Version None)
Quarter: 2012Q1

REPORT INFORMATION
  Report Type: 
  Country: None (occurrence: None)
  Receive Date: 20120110
  Receipt Date: 20120103
  Transmission Date: 20120608
  Serious: Yes (Other)
  Sender: FDA-Public Use
  Company Number: US-PFIZER INC-2012002277

PATIENT
  Sex: Female

DRUGS (3)
  1. GLUCOTROL [Suspect]
     Dosage: UNK
  2. METFORMIN HCL [Suspect]
  3. LIRAGLUTIDE (NN2211) [Suspect]
     Dosage: UNK

REACTIONS (2)
  - HYPOGLYCAEMIA [None]
  - CONFUSIONAL STATE [None]
